FAERS Safety Report 11689561 (Version 1)
Quarter: 2015Q4

REPORT INFORMATION
  Report Type: Spontaneous
  Country: US (occurrence: US)
  Receive Date: 20151102
  Receipt Date: 20151102
  Transmission Date: 20160304
  Serious: No
  Sender: FDA-Public Use
  Company Number: US-BIOGENIDEC-2015BI144280

PATIENT
  Age: 58 Year
  Sex: Female
  Weight: 103 kg

DRUGS (14)
  1. BYETTA [Concomitant]
     Active Substance: EXENATIDE
     Route: 058
  2. GLIMEPIRIDE (AMARYL) [Concomitant]
     Route: 048
  3. BUDESONIDE (PULMICORT) [Concomitant]
  4. FLUTICASONE (FLONASE) [Concomitant]
  5. CELEXA [Concomitant]
     Active Substance: CITALOPRAM HYDROBROMIDE
     Route: 048
  6. LISINOPRIL. [Concomitant]
     Active Substance: LISINOPRIL
     Route: 048
  7. GABAPENTIN (NEURONTIN) [Concomitant]
     Route: 048
     Dates: start: 20151019
  8. METFORMIN (GLUMETZA) [Concomitant]
     Route: 048
  9. ZANAFLEX [Concomitant]
     Active Substance: TIZANIDINE HYDROCHLORIDE
     Route: 048
     Dates: start: 20151019
  10. AVONEX [Suspect]
     Active Substance: INTERFERON BETA-1A
     Indication: RELAPSING-REMITTING MULTIPLE SCLEROSIS
     Route: 030
     Dates: start: 20070713
  11. VITAMIN D3 [Concomitant]
     Active Substance: CHOLECALCIFEROL
     Route: 048
  12. AVONEX [Suspect]
     Active Substance: INTERFERON BETA-1A
     Indication: RELAPSING-REMITTING MULTIPLE SCLEROSIS
     Route: 030
     Dates: start: 20061117, end: 20061117
  13. BUPROPION (WELLBUTRIN XL) [Concomitant]
  14. METFORMIN (GLUCOPHAGE) [Concomitant]
     Route: 048

REACTIONS (2)
  - Affective disorder [Not Recovered/Not Resolved]
  - Piriformis syndrome [Recovered/Resolved]
